FAERS Safety Report 7071041-3 (Version None)
Quarter: 2010Q4

REPORT INFORMATION
  Report Type: 
  Country: None (occurrence: None)
  Receive Date: 20101029
  Receipt Date: 20101021
  Transmission Date: 20110411
  Serious: Yes (Other)
  Sender: FDA-Public Use
  Company Number: US-PFIZER INC-2010113712

PATIENT
  Sex: Male
  Weight: 86.168 kg

DRUGS (5)
  1. CHANTIX [Suspect]
     Indication: SMOKING CESSATION THERAPY
     Dosage: 0.5 MG, 1X/DAY
     Route: 048
     Dates: start: 20090701, end: 20090101
  2. CHANTIX [Suspect]
     Indication: TOBACCO ABUSE
  3. PROZAC [Suspect]
     Dosage: UNK
  4. AMBIEN [Suspect]
     Dosage: UNK
  5. CLONAZEPAM [Suspect]
     Dosage: UNK

REACTIONS (6)
  - ANXIETY [None]
  - DEPRESSION [None]
  - HEADACHE [None]
  - PANIC ATTACK [None]
  - SLEEP DISORDER [None]
  - WEIGHT DECREASED [None]
